FAERS Safety Report 5733574-9 (Version None)
Quarter: 2008Q2

REPORT INFORMATION
  Report Type: 
  Country: None (occurrence: None)
  Receive Date: 20080509
  Receipt Date: 20080429
  Transmission Date: 20081010
  Serious: Yes (Hospitalization)
  Sender: FDA-Public Use
  Company Number: CH-JNJFOC-20080501201

PATIENT
  Age: 83 Year
  Sex: Female

DRUGS (9)
  1. TRAMADOL HCL [Suspect]
     Indication: DRUG USE FOR UNKNOWN INDICATION
     Route: 048
  2. DIOVAN HCT [Suspect]
     Indication: DRUG USE FOR UNKNOWN INDICATION
     Route: 048
  3. AMLODIPINE MALEATE [Suspect]
     Indication: DRUG USE FOR UNKNOWN INDICATION
     Route: 048
  4. CITALOPRAM HYDROBROMIDE [Suspect]
     Indication: DRUG USE FOR UNKNOWN INDICATION
     Route: 048
  5. BISOPROLOL FUMARATE [Concomitant]
     Route: 065
  6. SINTROM [Concomitant]
     Route: 065
  7. DANCOR [Concomitant]
     Route: 065
  8. CALCIMAGON D3 [Concomitant]
     Route: 065
  9. DAFALGAN [Concomitant]
     Route: 065

REACTIONS (1)
  - PANCREATITIS ACUTE [None]
